FAERS Safety Report 20660040 (Version 2)
Quarter: 2022Q3

REPORT INFORMATION
  Report Type: Spontaneous
  Country: US (occurrence: US)
  Receive Date: 20220331
  Receipt Date: 20220708
  Transmission Date: 20221027
  Serious: No
  Sender: FDA-Public Use
  Company Number: US-UPSHER-SMITH LABORATORIES, LLC-2022USL00180

PATIENT
  Age: 58 Year
  Sex: Female

DRUGS (5)
  1. ISOTRETINOIN [Suspect]
     Active Substance: ISOTRETINOIN
     Indication: Acne cystic
     Dosage: 10 MG, 1X/DAY AT DINNER
     Route: 048
     Dates: start: 202201
  2. ESTROGENS\PROGESTERONE\TESTOSTERONE [Suspect]
     Active Substance: ESTROGENS\PROGESTERONE\TESTOSTERONE
     Dosage: UNK, 3X/YEAR
     Dates: start: 202201
  3. ESTROGENS\PROGESTERONE\TESTOSTERONE [Suspect]
     Active Substance: ESTROGENS\PROGESTERONE\TESTOSTERONE
     Dosage: UNK, 3X/YEAR
  4. PROGESTERONE [Concomitant]
     Active Substance: PROGESTERONE
     Dosage: 200 MG, 1X/DAY
     Route: 048
  5. VITAMINS [Concomitant]
     Active Substance: VITAMINS

REACTIONS (1)
  - Night sweats [Not Recovered/Not Resolved]

NARRATIVE: CASE EVENT DATE: 20220101
